FAERS Safety Report 16944745 (Version 1)
Quarter: 2019Q4

REPORT INFORMATION
  Report Type: Spontaneous
  Country: US (occurrence: US)
  Receive Date: 20191022
  Receipt Date: 20191022
  Transmission Date: 20200122
  Serious: Yes (Death, Life-Threatening, Hospitalization, Other)
  Sender: FDA-Public Use
  Company Number: US-SUN PHARMACEUTICAL INDUSTRIES LTD-2019R1-224293

PATIENT
  Age: 73 Year
  Sex: Male

DRUGS (3)
  1. PEMBROLIZUMAB. [Suspect]
     Active Substance: PEMBROLIZUMAB
     Indication: CHEMOTHERAPY
     Dosage: UNK, COMPLETED HIS 8TH CYCLE
     Route: 042
  2. PEMETREXED. [Suspect]
     Active Substance: PEMETREXED
     Indication: CHEMOTHERAPY
     Dosage: UNK, COMPLETED HIS 8TH CYCLE
     Route: 065
  3. CARBOPLATIN. [Suspect]
     Active Substance: CARBOPLATIN
     Indication: CHEMOTHERAPY
     Dosage: UNK, COMPLETED HIS 4TH CYCLE
     Route: 065

REACTIONS (12)
  - Haemophagocytic lymphohistiocytosis [Fatal]
  - Thrombocytopenia [Unknown]
  - Respiratory failure [Unknown]
  - Cytomegalovirus test positive [Unknown]
  - Lactic acidosis [Unknown]
  - Blood bilirubin increased [Unknown]
  - Anaemia [Unknown]
  - Blood creatinine increased [Unknown]
  - Multiple organ dysfunction syndrome [Fatal]
  - Pyrexia [Unknown]
  - Transaminases increased [Unknown]
  - Epstein-Barr virus antibody positive [Unknown]
